FAERS Safety Report 15733369 (Version 1)
Quarter: 2018Q4

REPORT INFORMATION
  Report Type: Spontaneous
  Country: US (occurrence: US)
  Receive Date: 20181218
  Receipt Date: 20181218
  Transmission Date: 20190205
  Serious: No
  Sender: FDA-Public Use
  Company Number: US-DRREDDYS-USA/USA/18/0095779

PATIENT

DRUGS (2)
  1. HABITROL [Suspect]
     Active Substance: NICOTINE
     Indication: EPILEPSY
     Route: 065
  2. HABITROL [Suspect]
     Active Substance: NICOTINE
     Indication: OFF LABEL USE

REACTIONS (1)
  - Off label use [Unknown]
